FAERS Safety Report 9405957 (Version 1)
Quarter: 2013Q3

REPORT INFORMATION
  Report Type: Spontaneous
  Country: JP (occurrence: JP)
  Receive Date: 20130717
  Receipt Date: 20130717
  Transmission Date: 20140515
  Serious: Yes (Other)
  Sender: FDA-Public Use
  Company Number: JP-GLAXOSMITHKLINE-B0907610A

PATIENT
  Age: 73 Year
  Sex: Female

DRUGS (2)
  1. HEPSERA 10 [Suspect]
     Indication: CHRONIC HEPATITIS B
     Route: 048
  2. ZEFIX 100 [Suspect]
     Indication: CHRONIC HEPATITIS B
     Route: 048

REACTIONS (3)
  - Fanconi syndrome [Unknown]
  - Hypophosphataemia [Unknown]
  - Hypouricaemia [Unknown]
